FAERS Safety Report 10146452 (Version 1)
Quarter: 2014Q2

REPORT INFORMATION
  Report Type: Spontaneous
  Country: US (occurrence: None)
  Receive Date: 20140430
  Receipt Date: 20140430
  Transmission Date: 20141212
  Serious: Yes (Other)
  Sender: FDA-Public Use
  Company Number: None

PATIENT
  Age: 62 Year
  Sex: Male
  Weight: 67.13 kg

DRUGS (1)
  1. OMEPRAZOLE [Suspect]
     Indication: BARRETT^S OESOPHAGUS
     Dosage: 1 PILL, TWICE DAY, TAKEN BY MOUTH?
     Route: 048

REACTIONS (4)
  - Drug ineffective [None]
  - Product substitution issue [None]
  - Disease progression [None]
  - Gastrooesophageal reflux disease [None]
